FAERS Safety Report 8518442-1 (Version None)
Quarter: 2012Q3

REPORT INFORMATION
  Report Type: 
  Country: None (occurrence: None)
  Receive Date: 20120718
  Receipt Date: 20120306
  Transmission Date: 20120928
  Serious: No
  Sender: FDA-Public Use
  Company Number: US-BRISTOL-MYERS SQUIBB COMPANY-16437329

PATIENT
  Age: 53 Year
  Sex: Male
  Weight: 143 kg

DRUGS (2)
  1. PREDNISONE [Suspect]
     Indication: HAEMATOMA
  2. WARFARIN SODIUM [Suspect]

REACTIONS (5)
  - VISUAL IMPAIRMENT [None]
  - FEELING ABNORMAL [None]
  - NAUSEA [None]
  - ASTHENIA [None]
  - NERVOUSNESS [None]
